FAERS Safety Report 5906607-4 (Version None)
Quarter: 2008Q4

REPORT INFORMATION
  Report Type: 
  Country: None (occurrence: None)
  Receive Date: 20081002
  Receipt Date: 20080922
  Transmission Date: 20090506
  Serious: Yes (Hospitalization, Disabling)
  Sender: FDA-Public Use
  Company Number: GB-ELI_LILLY_AND_COMPANY-GB200807000314

PATIENT
  Age: 52 Year
  Sex: Male
  Weight: 104.7 kg

DRUGS (7)
  1. BYETTA [Suspect]
     Indication: TYPE 2 DIABETES MELLITUS
     Dosage: 5 UG, 2/D
     Route: 058
     Dates: start: 20071101
  2. BYETTA [Suspect]
     Dosage: 10 UG, 2/D
     Route: 058
     Dates: end: 20080508
  3. LISINOPRIL [Concomitant]
     Dosage: 10 MG, UNKNOWN
     Route: 048
  4. SIMVASTATIN [Concomitant]
     Dosage: 40 MG, UNKNOWN
     Route: 048
  5. LANSOPRAZOLE [Concomitant]
     Dosage: 30 MG, UNKNOWN
     Route: 048
  6. PROCHLORPERAZINE [Concomitant]
     Dosage: UNK, UNKNOWN
     Route: 065
  7. AVANDAMET [Concomitant]
     Indication: TYPE 2 DIABETES MELLITUS
     Dosage: 2MG+1MG, 2/D
     Route: 048
     Dates: start: 20080508

REACTIONS (1)
  - GLOMERULONEPHRITIS MEMBRANOUS [None]
